FAERS Safety Report 8774582 (Version 4)
Quarter: 2013Q1

REPORT INFORMATION
  Report Type: Spontaneous
  Country: US (occurrence: US)
  Receive Date: 20120907
  Receipt Date: 20130120
  Transmission Date: 20140127
  Serious: No
  Sender: FDA-Public Use
  Company Number: US-009507513-1208USA009840

PATIENT
  Sex: Male

DRUGS (3)
  1. PEGINTRON [Suspect]
     Indication: HEPATITIS C
     Dosage: UNK
     Route: 058
     Dates: start: 20120727
  2. RIBAVIRIN [Suspect]
     Indication: HEPATITIS C
     Dosage: UNK
     Route: 048
     Dates: start: 20120727
  3. TELAPREVIR [Suspect]
     Indication: HEPATITIS C
     Dosage: UNK
     Route: 048
     Dates: start: 20120727, end: 20121019

REACTIONS (16)
  - Emotional disorder [Unknown]
  - Thirst [Unknown]
  - Dehydration [Unknown]
  - Fatigue [Unknown]
  - Rash generalised [Unknown]
  - Asthenia [Unknown]
  - Depression [Unknown]
  - Anxiety [Unknown]
  - Dehydration [Unknown]
  - Rash [Unknown]
  - Asthenia [Unknown]
  - Dyspnoea [Unknown]
  - Rash generalised [Unknown]
  - Fatigue [Unknown]
  - Dehydration [Unknown]
  - Malaise [Unknown]
